APPROVED DRUG PRODUCT: TOPIRAMATE
Active Ingredient: TOPIRAMATE
Strength: 25MG
Dosage Form/Route: TABLET;ORAL
Application: A076327 | Product #001
Applicant: SUN PHARMACEUTICAL INDUSTRIES LTD
Approved: Mar 27, 2009 | RLD: No | RS: No | Type: DISCN